FAERS Safety Report 24096809 (Version 1)
Quarter: 2024Q3

REPORT INFORMATION
  Report Type: Spontaneous
  Country: CN (occurrence: CN)
  Receive Date: 20240716
  Receipt Date: 20240716
  Transmission Date: 20241016
  Serious: Yes (Life-Threatening, Hospitalization, Other)
  Sender: PFIZER
  Company Number: CN-PFIZER INC-PV202400091950

PATIENT
  Age: 14 Year
  Sex: Male
  Weight: 33 kg

DRUGS (2)
  1. CYTARABINE [Suspect]
     Active Substance: CYTARABINE
     Indication: Neoplasm
     Dosage: 2400 MG, 2X/DAY
     Route: 042
     Dates: start: 20240606, end: 20240608
  2. PEGASPARGASE [Suspect]
     Active Substance: PEGASPARGASE
     Indication: Neoplasm
     Dosage: 2400 IU, 1X/DAY
     Route: 042
     Dates: start: 20240608, end: 20240608

REACTIONS (2)
  - Posterior reversible encephalopathy syndrome [Recovering/Resolving]
  - Leukodystrophy [Recovering/Resolving]

NARRATIVE: CASE EVENT DATE: 20240619
